FAERS Safety Report 20818195 (Version 1)
Quarter: 2022Q2

REPORT INFORMATION
  Report Type: Spontaneous
  Country: US (occurrence: US)
  Receive Date: 20220512
  Receipt Date: 20220512
  Transmission Date: 20220720
  Serious: Yes (Hospitalization)
  Sender: FDA-Public Use
  Company Number: US-Accord-263274

PATIENT
  Age: 47 Year
  Sex: Female

DRUGS (1)
  1. DIMETHYL FUMARATE [Suspect]
     Active Substance: DIMETHYL FUMARATE
     Indication: Multiple sclerosis relapse
     Dosage: 120 MG TWICE A DAY
     Route: 048

REACTIONS (1)
  - Stress cardiomyopathy [Recovered/Resolved]
